FAERS Safety Report 24137630 (Version 1)
Quarter: 2024Q3

REPORT INFORMATION
  Report Type: Spontaneous
  Country: US (occurrence: US)
  Receive Date: 20240725
  Receipt Date: 20240725
  Transmission Date: 20241017
  Serious: Yes (Hospitalization, Other)
  Sender: BRACCO
  Company Number: US-BRACCO-2024US04329

PATIENT
  Age: 65 Year
  Sex: Female

DRUGS (2)
  1. IOPAMIDOL [Suspect]
     Active Substance: IOPAMIDOL
     Dosage: AFTER 72 HOURS OF SYMPTOMS, SINGLE
  2. IOPAMIDOL [Suspect]
     Active Substance: IOPAMIDOL
     Indication: Angiogram
     Dosage: UNK, SINGLE

REACTIONS (2)
  - Drug reaction with eosinophilia and systemic symptoms [Unknown]
  - Inappropriate antidiuretic hormone secretion [Unknown]
